FAERS Safety Report 9773559 (Version 1)
Quarter: 2013Q4

REPORT INFORMATION
  Report Type: Spontaneous
  Country: DE (occurrence: DE)
  Receive Date: 20131219
  Receipt Date: 20131219
  Transmission Date: 20140711
  Serious: Yes (Other)
  Sender: FDA-Public Use
  Company Number: GXKR2013DE003831

PATIENT
  Age: 59 Year
  Sex: Female

DRUGS (3)
  1. ESTRAMON [Suspect]
     Dosage: UNK UKN, UNK
     Route: 048
  2. ESTRAMON [Suspect]
     Dosage: 37.5 UG, UNK
     Route: 048
  3. DUPHASTON [Suspect]
     Route: 048

REACTIONS (1)
  - Postmenopausal haemorrhage [Unknown]
